FAERS Safety Report 16483701 (Version 1)
Quarter: 2019Q2

REPORT INFORMATION
  Report Type: Spontaneous
  Country: ES (occurrence: ES)
  Receive Date: 20190627
  Receipt Date: 20190627
  Transmission Date: 20190711
  Serious: Yes (Hospitalization)
  Sender: FDA-Public Use
  Company Number: ES-TEVA-2019-ES-1067331

PATIENT
  Age: 17 Month
  Sex: Female
  Weight: 12.1 kg

DRUGS (2)
  1. QUETIAPINE FUMARATE. [Suspect]
     Active Substance: QUETIAPINE FUMARATE
     Indication: ACCIDENTAL OVERDOSE
     Dosage: INGESTED 2 TABLETS
     Route: 048
  2. LORMETAZEPAM [Suspect]
     Active Substance: LORMETAZEPAM
     Indication: ACCIDENTAL OVERDOSE
     Dosage: INGESTED A HALF TABLET
     Route: 048

REACTIONS (7)
  - Accidental poisoning [Recovered/Resolved]
  - Depressed level of consciousness [Recovered/Resolved]
  - Urinary retention [Recovered/Resolved]
  - Neutropenia [Recovered/Resolved]
  - Thrombocytopenia [Recovered/Resolved]
  - Accidental overdose [Recovered/Resolved]
  - Miosis [Recovered/Resolved]
